FAERS Safety Report 8816804 (Version 1)
Quarter: 2012Q4

REPORT INFORMATION
  Report Type: Spontaneous
  Country: IT (occurrence: None)
  Receive Date: 20121001
  Receipt Date: 20121001
  Transmission Date: 20130627
  Serious: Yes (Other)
  Sender: FDA-Public Use
  Company Number: GER/ITL/12/0025989

PATIENT
  Age: 55 Year
  Sex: Female
  Weight: 60 kg

DRUGS (2)
  1. RAMIPRIL (RAMIPRIL) [Suspect]
     Indication: HYPERTENSION
     Route: 048
     Dates: start: 20111024, end: 20120112
  2. NEBIVOLOL [Suspect]
     Dates: start: 20120105, end: 20120112

REACTIONS (4)
  - Dyspepsia [None]
  - Dyspnoea [None]
  - Peripheral coldness [None]
  - Drug interaction [None]
